FAERS Safety Report 6694976-X (Version None)
Quarter: 2010Q2

REPORT INFORMATION
  Report Type: 
  Country: None (occurrence: None)
  Receive Date: 20100423
  Receipt Date: 20100415
  Transmission Date: 20101027
  Serious: Yes (Hospitalization)
  Sender: FDA-Public Use
  Company Number: GB-AMGEN-QUU398622

PATIENT
  Age: 36 Year
  Sex: Male
  Weight: 57 kg

DRUGS (6)
  1. CINACALCET HYDROCHLORIDE [Suspect]
     Indication: HYPERPARATHYROIDISM SECONDARY
  2. MICERA [Concomitant]
  3. ALFACALCIDOL [Concomitant]
  4. RENAGEL [Concomitant]
  5. SENNA [Concomitant]
  6. CLONAZEPAM [Concomitant]

REACTIONS (1)
  - CONVULSION [None]
